FAERS Safety Report 8390436-9 (Version None)
Quarter: 2012Q2

REPORT INFORMATION
  Report Type: 
  Country: None (occurrence: None)
  Receive Date: 20120522
  Receipt Date: 20120517
  Transmission Date: 20120825
  Serious: Yes (Death, Life-Threatening)
  Sender: FDA-Public Use
  Company Number: 2012SP026357

PATIENT
  Age: 51 Year
  Sex: Male

DRUGS (3)
  1. DEPAKOTE [Concomitant]
  2. ZYPREXA [Concomitant]
  3. SAPHRIS [Suspect]
     Indication: PRODUCT USED FOR UNKNOWN INDICATION
     Dosage: SL
     Route: 060

REACTIONS (1)
  - MYOCARDIAL INFARCTION [None]
